FAERS Safety Report 11084101 (Version 2)
Quarter: 2015Q2

REPORT INFORMATION
  Report Type: Spontaneous
  Country: US (occurrence: US)
  Receive Date: 20150502
  Receipt Date: 20150526
  Transmission Date: 20150821
  Serious: No
  Sender: FDA-Public Use
  Company Number: US-JNJFOC-20130312100

PATIENT
  Age: 19 Year
  Sex: Female
  Weight: 58.06 kg

DRUGS (2)
  1. ZYRTEC [Concomitant]
     Active Substance: CETIRIZINE HYDROCHLORIDE
     Indication: MULTIPLE ALLERGIES
     Route: 065
     Dates: start: 2013
  2. ORTHO EVRA [Suspect]
     Active Substance: ETHINYL ESTRADIOL\NORELGESTROMIN
     Indication: HORMONE LEVEL ABNORMAL
     Route: 062
     Dates: start: 201211

REACTIONS (6)
  - Menorrhagia [Not Recovered/Not Resolved]
  - Withdrawal bleed [Not Recovered/Not Resolved]
  - Product use issue [Not Recovered/Not Resolved]
  - Product quality issue [Unknown]
  - Menstruation irregular [Recovered/Resolved]
  - Inappropriate schedule of drug administration [Unknown]

NARRATIVE: CASE EVENT DATE: 2013
